FAERS Safety Report 12575953 (Version 1)
Quarter: 2016Q3

REPORT INFORMATION
  Report Type: Report from Study
  Country: AU (occurrence: AU)
  Receive Date: 20160720
  Receipt Date: 20160720
  Transmission Date: 20161109
  Serious: Yes (Hospitalization)
  Sender: FDA-Public Use
  Company Number: AU-ABBVIE-16P-008-1567743-00

PATIENT
  Age: 68 Year
  Sex: Male

DRUGS (2)
  1. DUODOPA [Suspect]
     Active Substance: CARBIDOPA\LEVODOPA
     Dosage: CR WAS REDUCED TO 5.0ML/HR; DUODOPA 24 HOURS PER DAY
     Route: 050
     Dates: start: 2016
  2. DUODOPA [Suspect]
     Active Substance: CARBIDOPA\LEVODOPA
     Indication: PARKINSON^S DISEASE
     Dosage: 16 HOUR INFUSION
     Route: 050
     Dates: start: 201601

REACTIONS (4)
  - On and off phenomenon [Recovering/Resolving]
  - Diarrhoea [Unknown]
  - Stoma site infection [Unknown]
  - Injury [Unknown]

NARRATIVE: CASE EVENT DATE: 2016
